FAERS Safety Report 5193108-7 (Version None)
Quarter: 2006Q4

REPORT INFORMATION
  Report Type: 
  Country: None (occurrence: None)
  Receive Date: 20061228
  Receipt Date: 20060502
  Transmission Date: 20070319
  Serious: No
  Sender: FDA-Public Use
  Company Number: US-GLAXOSMITHKLINE-A0604073A

PATIENT
  Sex: Male

DRUGS (16)
  1. AVODART [Suspect]
     Indication: BENIGN PROSTATIC HYPERPLASIA
     Dosage: .5MG PER DAY
     Route: 048
     Dates: start: 20060201
  2. GLUCOVANCE [Concomitant]
  3. FUROSEMIDE [Concomitant]
  4. POTASSIUM CHLORIDE [Concomitant]
  5. ASPIRIN [Concomitant]
  6. PLAVIX [Concomitant]
  7. TOPROL-XL [Concomitant]
  8. LISINOPRIL [Concomitant]
  9. LIPITOR [Concomitant]
  10. ZETIA [Concomitant]
  11. ACTOS [Concomitant]
  12. VITAMIN D [Concomitant]
  13. MULTI-VITAMIN [Concomitant]
  14. VITAMIN B-12 [Concomitant]
  15. FOLIC ACID [Concomitant]
  16. ZAROXOLYN [Concomitant]

REACTIONS (2)
  - DRUG INEFFECTIVE [None]
  - URINE FLOW DECREASED [None]
